FAERS Safety Report 9580246 (Version 1)
Quarter: 2013Q3

REPORT INFORMATION
  Report Type: Spontaneous
  Country: US (occurrence: None)
  Receive Date: 20130916
  Receipt Date: 20130916
  Transmission Date: 20140515
  Serious: Yes (Other)
  Sender: FDA-Public Use
  Company Number: JPI-P-032550

PATIENT
  Age: 19 Year
  Sex: Female
  Weight: 77.11 kg

DRUGS (1)
  1. XYREM (500 MILLIGRAM/MILLILITERS, SOLUTION) (SODIUM OXYBATE) [Suspect]
     Indication: CATAPLEXY
     Dosage: 4.5 GM  (2.25 GM,  2 IN 1 D), ORAL
     Route: 048
     Dates: start: 20130327, end: 2013

REACTIONS (4)
  - Suicidal ideation [None]
  - Anger [None]
  - Irritability [None]
  - Insomnia [None]
